FAERS Safety Report 20761459 (Version 3)
Quarter: 2022Q2

REPORT INFORMATION
  Report Type: Report from Study
  Country: IT (occurrence: None)
  Receive Date: 20220428
  Receipt Date: 20220527
  Transmission Date: 20220720
  Serious: Yes (Hospitalization)
  Sender: FDA-Public Use
  Company Number: IT-ROCHE-3080279

PATIENT
  Age: 37 Year
  Sex: Female
  Weight: 78 kg

DRUGS (6)
  1. ATEZOLIZUMAB [Suspect]
     Active Substance: ATEZOLIZUMAB
     Indication: Breast cancer
     Dosage: LAST DOSE BEFORE SAE 28/MAR/2022?NO. OF COURSES 3
     Route: 041
     Dates: start: 20220124, end: 20220408
  2. PERTUZUMAB\TRASTUZUMAB [Suspect]
     Active Substance: PERTUZUMAB\TRASTUZUMAB
     Indication: Breast cancer
     Dosage: TRASTUZUMAB (H) WILL BE DELIVERED ON DAY 1 AT THE DOSE OF 8 MG/KG LOADING DOSE I.V., THEN 6 MG/KG I.
     Route: 058
     Dates: start: 20220328
  3. EPIRUBICIN [Concomitant]
     Active Substance: EPIRUBICIN
     Route: 042
     Dates: start: 20220124, end: 20220307
  4. CYCLOPHOSPHAMIDE [Concomitant]
     Active Substance: CYCLOPHOSPHAMIDE
     Route: 042
     Dates: start: 20220124, end: 20220307
  5. PACLITAXEL [Concomitant]
     Active Substance: PACLITAXEL
     Route: 042
     Dates: start: 20220328
  6. CARBOPLATIN [Concomitant]
     Active Substance: CARBOPLATIN
     Route: 042
     Dates: start: 20220328

REACTIONS (1)
  - Diarrhoea [Not Recovered/Not Resolved]

NARRATIVE: CASE EVENT DATE: 20220408
